FAERS Safety Report 13656521 (Version 2)
Quarter: 2018Q1

REPORT INFORMATION
  Report Type: Spontaneous
  Country: GB (occurrence: GB)
  Receive Date: 20170615
  Receipt Date: 20180131
  Transmission Date: 20180508
  Serious: Yes (Other)
  Sender: FDA-Public Use
  Company Number: GB-MYLANLABS-2017M1034427

PATIENT
  Age: 72 Year
  Sex: Female

DRUGS (2)
  1. CLOZARIL [Suspect]
     Active Substance: CLOZAPINE
     Indication: SCHIZOPHRENIA
     Dosage: UNK
     Route: 048
     Dates: start: 20170515, end: 20170603
  2. CLOZARIL [Suspect]
     Active Substance: CLOZAPINE
     Dosage: UNK
     Route: 048
     Dates: start: 20170607

REACTIONS (3)
  - Hypertension [Recovering/Resolving]
  - Urosepsis [Recovering/Resolving]
  - Drug dose omission [Recovered/Resolved]

NARRATIVE: CASE EVENT DATE: 2017
